FAERS Safety Report 10578184 (Version 1)
Quarter: 2014Q4

REPORT INFORMATION
  Report Type: Report from Study
  Country: US (occurrence: US)
  Receive Date: 20141112
  Receipt Date: 20141112
  Transmission Date: 20150529
  Serious: Yes (Other)
  Sender: FDA-Public Use
  Company Number: US-BIOGENIDEC-2014BI117037

PATIENT
  Age: 0 Day
  Sex: Female
  Weight: 1 kg

DRUGS (1)
  1. AVONEX [Suspect]
     Active Substance: INTERFERON BETA-1A
     Indication: MATERNAL EXPOSURE TIMING UNSPECIFIED
     Route: 064
     Dates: start: 200611, end: 200611

REACTIONS (1)
  - Low birth weight baby [Recovered/Resolved]

NARRATIVE: CASE EVENT DATE: 20070707
